FAERS Safety Report 6106678-9 (Version None)
Quarter: 2009Q1

REPORT INFORMATION
  Report Type: 
  Country: None (occurrence: None)
  Receive Date: 20090306
  Receipt Date: 20090227
  Transmission Date: 20090719
  Serious: Yes (Other)
  Sender: FDA-Public Use
  Company Number: US-JNJCH-2009005602

PATIENT
  Sex: Female

DRUGS (1)
  1. LISTERINE WHITENING PRE-BRUSH RINSE [Suspect]
     Indication: DRUG USE FOR UNKNOWN INDICATION
     Dosage: TEXT:AS DIRECTED
     Route: 048
     Dates: start: 20090101, end: 20090101

REACTIONS (5)
  - AGEUSIA [None]
  - APPLICATION SITE BURN [None]
  - APPLICATION SITE EXFOLIATION [None]
  - DISCOMFORT [None]
  - ORAL DISORDER [None]
